FAERS Safety Report 18879461 (Version 1)
Quarter: 2021Q1

REPORT INFORMATION
  Report Type: Spontaneous
  Country: US (occurrence: US)
  Receive Date: 20210211
  Receipt Date: 20210211
  Transmission Date: 20210420
  Serious: Yes (Hospitalization)
  Sender: FDA-Public Use
  Company Number: None

PATIENT
  Age: 63 Year
  Sex: Female
  Weight: 110.7 kg

DRUGS (1)
  1. BAMLANIVIMAB. [Suspect]
     Active Substance: BAMLANIVIMAB
     Indication: COVID-19
     Dosage: ?          OTHER FREQUENCY:ONCE;?
     Route: 042
     Dates: start: 20210203, end: 20210203

REACTIONS (14)
  - Sputum discoloured [None]
  - Vomiting [None]
  - Urinary incontinence [None]
  - Pyrexia [None]
  - Dyspnoea [None]
  - Asthenia [None]
  - Micturition urgency [None]
  - Gait disturbance [None]
  - Productive cough [None]
  - Chills [None]
  - Hyperhidrosis [None]
  - Fatigue [None]
  - Nausea [None]
  - Pollakiuria [None]

NARRATIVE: CASE EVENT DATE: 20210206
